FAERS Safety Report 13205867 (Version 1)
Quarter: 2017Q1

REPORT INFORMATION
  Report Type: Spontaneous
  Country: US (occurrence: US)
  Receive Date: 20170208
  Receipt Date: 20170208
  Transmission Date: 20170428
  Serious: Yes (Disabling, Other)
  Sender: FDA-Public Use
  Company Number: None

PATIENT
  Age: 66 Year
  Sex: Female
  Weight: 67.5 kg

DRUGS (2)
  1. NITROFURANTOIN MONOHYDRATE MACROCRYSTALS [Suspect]
     Active Substance: NITROFURANTOIN\NITROFURANTOIN MONOHYDRATE
     Indication: URINARY TRACT INFECTION
     Dosage: ?          QUANTITY:1 CAPSULE(S);?
     Route: 048
     Dates: start: 20170126, end: 20170203
  2. LEVOTHYROXINE. [Concomitant]
     Active Substance: LEVOTHYROXINE

REACTIONS (7)
  - Pyrexia [None]
  - Decreased appetite [None]
  - Headache [None]
  - Therapy cessation [None]
  - Abdominal pain upper [None]
  - Haematochezia [None]
  - Chills [None]

NARRATIVE: CASE EVENT DATE: 20170202
